FAERS Safety Report 17865652 (Version 1)
Quarter: 2020Q2

REPORT INFORMATION
  Report Type: Spontaneous
  Country: FI (occurrence: FI)
  Receive Date: 20200605
  Receipt Date: 20200605
  Transmission Date: 20200714
  Serious: Yes (Life-Threatening)
  Sender: FDA-Public Use
  Company Number: FI-TEVA-2020-FI-1244438

PATIENT
  Age: 61 Year
  Sex: Male

DRUGS (2)
  1. ATORVASTATIN [Suspect]
     Active Substance: ATORVASTATIN
     Indication: HYPERCHOLESTEROLAEMIA
     Dosage: 80 MG DAILY
     Route: 048
     Dates: start: 201902
  2. EZETIMIBE. [Concomitant]
     Active Substance: EZETIMIBE
     Dosage: 10 MG DAILY
     Route: 048
     Dates: start: 201905

REACTIONS (2)
  - Autoimmune myositis [Recovering/Resolving]
  - Necrotising myositis [Recovering/Resolving]

NARRATIVE: CASE EVENT DATE: 202005
